FAERS Safety Report 13195288 (Version 5)
Quarter: 2017Q3

REPORT INFORMATION
  Report Type: Report from Study
  Country: CN (occurrence: CN)
  Receive Date: 20170208
  Receipt Date: 20170922
  Transmission Date: 20171127
  Serious: Yes (Death, Hospitalization)
  Sender: FDA-Public Use
  Company Number: CN-ROCHE-1889570

PATIENT
  Age: 55 Year
  Sex: Male
  Weight: 94 kg

DRUGS (22)
  1. AMINO ACID [Concomitant]
     Active Substance: AMINO ACIDS
     Route: 065
     Dates: start: 20170129, end: 20170203
  2. POTASSIUM CHLORIDE. [Concomitant]
     Active Substance: POTASSIUM CHLORIDE
     Route: 065
     Dates: start: 20170129, end: 20170129
  3. VITAMIN B6 [Concomitant]
     Active Substance: PYRIDOXINE HYDROCHLORIDE
     Route: 065
     Dates: start: 20170129, end: 20170129
  4. PANTOPRAZOLE [Concomitant]
     Active Substance: PANTOPRAZOLE
     Route: 065
     Dates: start: 20170129, end: 20170203
  5. TRAMADOL HYDROCHLORIDE. [Concomitant]
     Active Substance: TRAMADOL HYDROCHLORIDE
     Route: 065
     Dates: start: 20170131, end: 20170131
  6. FAT EMULSION NOS [Concomitant]
     Active Substance: EGG PHOSPHOLIPIDS\SAFFLOWER OIL\SOYBEAN OIL
     Route: 065
     Dates: start: 20170201, end: 20170203
  7. ATEZOLIZUMAB. [Suspect]
     Active Substance: ATEZOLIZUMAB
     Indication: NON-SMALL CELL LUNG CANCER
     Dosage: MOST RECENT DOSE: 17/JAN/2017
     Route: 042
     Dates: start: 20161228
  8. ALBUMIN [Concomitant]
     Active Substance: ALBUMIN HUMAN
     Route: 065
     Dates: start: 20170201, end: 20170201
  9. TRAMADOL HYDROCHLORIDE. [Concomitant]
     Active Substance: TRAMADOL HYDROCHLORIDE
     Route: 065
     Dates: start: 20161225, end: 20161229
  10. GRANISETRON [Concomitant]
     Active Substance: GRANISETRON
     Route: 065
     Dates: start: 20170129, end: 20170131
  11. CEFOPERAZONE SODIUM/SULBACTAM SODIUM [Concomitant]
     Active Substance: CEFOPERAZONE SODIUM\SULBACTAM SODIUM
     Route: 065
     Dates: start: 20170129, end: 20170203
  12. SODIUM IBANDRONATE [Concomitant]
     Route: 065
     Dates: start: 20161225
  13. CALCIUM GLUCONATE. [Concomitant]
     Active Substance: CALCIUM GLUCONATE
     Route: 065
     Dates: start: 20170203, end: 20170203
  14. VITAMIN C [Concomitant]
     Active Substance: ASCORBIC ACID
     Route: 065
     Dates: start: 20170129, end: 20170129
  15. ALBUMIN [Concomitant]
     Active Substance: ALBUMIN HUMAN
     Route: 065
     Dates: start: 20170203, end: 20170203
  16. MORPHINE [Concomitant]
     Active Substance: MORPHINE
     Route: 065
     Dates: start: 20170203, end: 20170203
  17. LIDOCAINE. [Concomitant]
     Active Substance: LIDOCAINE
     Dosage: LOCAL PAINKILLER?(UNKNOWN INGREDIENTS)
     Route: 065
     Dates: start: 20170129, end: 20170129
  18. FUROSEMIDE. [Concomitant]
     Active Substance: FUROSEMIDE
     Route: 065
     Dates: start: 20170129, end: 20170129
  19. GLUTATHIONE [Concomitant]
     Active Substance: GLUTATHIONE
     Route: 048
     Dates: start: 20170129, end: 20170203
  20. POTASSIUM CHLORIDE. [Concomitant]
     Active Substance: POTASSIUM CHLORIDE
     Route: 065
     Dates: start: 20170202, end: 20170204
  21. FENTANYL TRANSDERMAL SYSTEM [Concomitant]
     Active Substance: FENTANYL
     Route: 065
     Dates: start: 20170204, end: 201702
  22. CELECOXIB. [Concomitant]
     Active Substance: CELECOXIB
     Route: 065
     Dates: start: 20161225, end: 20161229

REACTIONS (1)
  - Renal failure [Unknown]

NARRATIVE: CASE EVENT DATE: 20170128
